FAERS Safety Report 9017137 (Version 2)
Quarter: 2013Q1

REPORT INFORMATION
  Report Type: Spontaneous
  Country: AT (occurrence: AT)
  Receive Date: 20130117
  Receipt Date: 20130124
  Transmission Date: 20140127
  Serious: Yes (Hospitalization)
  Sender: FDA-Public Use
  Company Number: AT-ELI_LILLY_AND_COMPANY-AT201301003755

PATIENT
  Age: 59 Year
  Sex: Male
  Weight: 84 kg

DRUGS (4)
  1. PRASUGREL HYDROCHLORIDE [Suspect]
     Indication: ACUTE CORONARY SYNDROME
     Dosage: 60 MG, OTHER
     Dates: start: 20110117, end: 20110217
  2. PRASUGREL HYDROCHLORIDE [Suspect]
     Dosage: 10 MG, QD
     Dates: end: 20110217
  3. ASPIRIN [Concomitant]
     Dosage: UNK, SINGLE
  4. ASPIRIN [Concomitant]
     Dosage: 100 MG, UNK

REACTIONS (1)
  - Acute myocardial infarction [Recovered/Resolved]
